FAERS Safety Report 6435298-1 (Version None)
Quarter: 2009Q4

REPORT INFORMATION
  Report Type: 
  Country: None (occurrence: None)
  Receive Date: 20091106
  Receipt Date: 20091026
  Transmission Date: 20100525
  Serious: Yes (Hospitalization)
  Sender: FDA-Public Use
  Company Number: 8047428

PATIENT
  Age: 68 Year
  Sex: Female

DRUGS (3)
  1. PREDNISOLONE [Suspect]
     Dosage: 30 MG
  2. CLARITHROMYCIN [Suspect]
     Dosage: 500 MG 2/D
  3. NICOTINE [Suspect]
     Indication: SMOKING CESSATION THERAPY
     Dosage: TRD
     Dates: start: 20090401, end: 20090404

REACTIONS (5)
  - DRUG INTERACTION [None]
  - DYSPNOEA [None]
  - EXERCISE TOLERANCE DECREASED [None]
  - PRODUCTIVE COUGH [None]
  - SPUTUM DISCOLOURED [None]
